FAERS Safety Report 9889233 (Version 2)
Quarter: 2014Q1

REPORT INFORMATION
  Report Type: Spontaneous
  Country: JP (occurrence: JP)
  Receive Date: 20140211
  Receipt Date: 20140211
  Transmission Date: 20141002
  Serious: Yes (Other)
  Sender: FDA-Public Use
  Company Number: PHHY2011JP57472

PATIENT
  Age: 74 Year
  Sex: Male

DRUGS (1)
  1. CARBOPLATIN SANDOZ [Suspect]
     Indication: LARYNGEAL CANCER
     Dates: start: 200907

REACTIONS (7)
  - Pharyngeal fistula [Recovering/Resolving]
  - Purulent discharge [Unknown]
  - Ischaemia [Recovering/Resolving]
  - Mucosal necrosis [Recovering/Resolving]
  - Wound dehiscence [Recovering/Resolving]
  - Infection [Recovering/Resolving]
  - Laryngeal cancer recurrent [Recovering/Resolving]
